FAERS Safety Report 17005579 (Version 1)
Quarter: 2019Q4

REPORT INFORMATION
  Report Type: Spontaneous
  Country: US (occurrence: US)
  Receive Date: 20191107
  Receipt Date: 20191107
  Transmission Date: 20200122
  Serious: No
  Sender: FDA-Public Use
  Company Number: US-BAYER-2019-201754

PATIENT
  Sex: Female

DRUGS (5)
  1. MULTIVITAMINS [VITAMINS NOS] [Concomitant]
     Active Substance: VITAMINS
     Dosage: UNK
  2. OMEGA 3 [DOCOSAHEXAENOIC ACID;EICOSAPENTAENOIC ACID] [Concomitant]
     Active Substance: DOCONEXENT\ICOSAPENT
     Dosage: UNK
  3. ALEVE [Suspect]
     Active Substance: NAPROXEN SODIUM
     Indication: NASOPHARYNGITIS
     Dosage: 2 DF, BID
     Dates: start: 20191105
  4. ALEVE [Suspect]
     Active Substance: NAPROXEN SODIUM
     Indication: HYPERSENSITIVITY
     Dosage: 0.5 DF
     Route: 048
     Dates: start: 20191102, end: 20191105
  5. BLACK CUMIN OIL [Concomitant]
     Dosage: UNK

REACTIONS (3)
  - Headache [Recovered/Resolved]
  - Extra dose administered [Unknown]
  - Product prescribing issue [Unknown]

NARRATIVE: CASE EVENT DATE: 20191102
